FAERS Safety Report 13488638 (Version 1)
Quarter: 2017Q2

REPORT INFORMATION
  Report Type: Spontaneous
  Country: US (occurrence: US)
  Receive Date: 20170426
  Receipt Date: 20170426
  Transmission Date: 20170830
  Serious: Yes (Hospitalization, Other)
  Sender: FDA-Public Use
  Company Number: US-ALKERMES INC.-ALK-2017-000177

PATIENT
  Age: 49 Year
  Sex: Male
  Weight: 63.49 kg

DRUGS (1)
  1. VIVITROL [Suspect]
     Active Substance: NALTREXONE
     Indication: ALCOHOLISM
     Dosage: 380 MG, QMO
     Route: 030
     Dates: start: 20170113

REACTIONS (9)
  - Drug ineffective [Unknown]
  - Alcoholism [Not Recovered/Not Resolved]
  - Delirium [Unknown]
  - Tremor [Unknown]
  - Anxiety [Not Recovered/Not Resolved]
  - Seizure [Unknown]
  - Feeling drunk [Not Recovered/Not Resolved]
  - Malaise [Unknown]
  - Feeling of despair [Not Recovered/Not Resolved]

NARRATIVE: CASE EVENT DATE: 20160114
